FAERS Safety Report 9091166 (Version 2)
Quarter: 2013Q1

REPORT INFORMATION
  Report Type: Spontaneous
  Country: CA (occurrence: CA)
  Receive Date: 20130201
  Receipt Date: 20130327
  Transmission Date: 20140127
  Serious: Yes (Other)
  Sender: FDA-Public Use
  Company Number: CA-ASTRAZENECA-2013SE05783

PATIENT
  Age: 43 Year
  Sex: Female

DRUGS (1)
  1. SYMBICORT TURBUHALER [Suspect]
     Indication: ASTHMA
     Dosage: INTREMITTENTLY TWO PUFFS BID
     Route: 055

REACTIONS (3)
  - Chorioretinopathy [Recovering/Resolving]
  - Retinal vein occlusion [Unknown]
  - Detachment of macular retinal pigment epithelium [Unknown]
